FAERS Safety Report 6475175-3 (Version None)
Quarter: 2009Q4

REPORT INFORMATION
  Report Type: 
  Country: None (occurrence: None)
  Receive Date: 20091204
  Receipt Date: 20090511
  Transmission Date: 20100525
  Serious: Yes (Other)
  Sender: FDA-Public Use
  Company Number: US-ELI_LILLY_AND_COMPANY-US200903006417

PATIENT
  Age: 35 Year
  Sex: Female
  Weight: 156.46 kg

DRUGS (18)
  1. CYMBALTA [Suspect]
     Dosage: 30 MG, UNK
     Dates: start: 20090115, end: 20090129
  2. LYRICA [Concomitant]
     Indication: NEURALGIA
  3. DIGOXIN [Concomitant]
     Indication: PALPITATIONS
  4. LEXAPRO [Concomitant]
  5. NITROGLYCERIN [Concomitant]
     Indication: CHEST PAIN
  6. METFORMIN HCL [Concomitant]
     Indication: DIABETES MELLITUS
  7. PLAQUENIL [Concomitant]
     Indication: SYSTEMIC LUPUS ERYTHEMATOSUS
  8. DILTIAZEM-COPHAR [Concomitant]
     Indication: ANGINA PECTORIS
  9. MEXILETINE HYDROCHLORIDE [Concomitant]
     Indication: ARRHYTHMIA
  10. METOPROLOL TARTRATE [Concomitant]
  11. KETOPROFEN [Concomitant]
     Indication: ARTHRITIS
  12. METHOTREXATE [Concomitant]
     Indication: RHEUMATOID ARTHRITIS
  13. SODIUM SALICYLATE ECT [Concomitant]
     Indication: ARTHRITIS
  14. LASIX [Concomitant]
     Indication: DIURETIC THERAPY
  15. MORPHINE SULFATE [Concomitant]
     Indication: PAIN
  16. ASPIRIN [Concomitant]
  17. VITAMIN D [Concomitant]
  18. FOLIC ACID [Concomitant]

REACTIONS (5)
  - ALANINE AMINOTRANSFERASE INCREASED [None]
  - ASPARTATE AMINOTRANSFERASE INCREASED [None]
  - BLOOD ALKALINE PHOSPHATASE INCREASED [None]
  - BLOOD CREATINE PHOSPHOKINASE INCREASED [None]
  - GAMMA-GLUTAMYLTRANSFERASE INCREASED [None]
